FAERS Safety Report 25890542 (Version 1)
Quarter: 2025Q4

REPORT INFORMATION
  Report Type: Spontaneous
  Country: CA (occurrence: CA)
  Receive Date: 20251007
  Receipt Date: 20251007
  Transmission Date: 20260118
  Serious: Yes (Other)
  Sender: JOHNSON AND JOHNSON
  Company Number: CA-JNJFOC-20250947198

PATIENT
  Age: 74 Year
  Sex: Male

DRUGS (3)
  1. ERLEADA [Suspect]
     Active Substance: APALUTAMIDE
     Indication: Product used for unknown indication
     Route: 048
  2. ELIGARD [Suspect]
     Active Substance: LEUPROLIDE ACETATE
     Indication: Prostate cancer
     Dosage: POWDER FOR SUSPENSION, SUSTAINED-RELEASE
     Route: 058
  3. TAMSULOSIN [Concomitant]
     Active Substance: TAMSULOSIN
     Indication: Product used for unknown indication

REACTIONS (9)
  - Angina pectoris [Unknown]
  - Asthenia [Unknown]
  - Chest pain [Unknown]
  - Dysuria [Unknown]
  - Hot flush [Unknown]
  - Malaise [Unknown]
  - Night sweats [Unknown]
  - Prostatic specific antigen abnormal [Unknown]
  - Rash [Unknown]
